FAERS Safety Report 5484692-4 (Version None)
Quarter: 2007Q4

REPORT INFORMATION
  Report Type: 
  Country: None (occurrence: None)
  Receive Date: 20071010
  Receipt Date: 20070925
  Transmission Date: 20080405
  Serious: No
  Sender: FDA-Public Use
  Company Number: 2007JP003650

PATIENT
  Age: 10 Year
  Sex: Female

DRUGS (1)
  1. PROTOPIC [Suspect]
     Indication: DERMATITIS ATOPIC
     Dosage: 0.03%, TOPICAL
     Route: 061
     Dates: start: 20000731

REACTIONS (3)
  - ERYTHEMA INFECTIOSUM [None]
  - FOLLICULITIS [None]
  - SKIN PAPILLOMA [None]
